FAERS Safety Report 6431856-9 (Version None)
Quarter: 2009Q4

REPORT INFORMATION
  Report Type: 
  Country: None (occurrence: None)
  Receive Date: 20091108
  Receipt Date: 20091102
  Transmission Date: 20100525
  Serious: Yes (Death, Hospitalization, Other)
  Sender: FDA-Public Use
  Company Number: PHEH2009US12843

PATIENT
  Sex: Female

DRUGS (3)
  1. EXJADE [Suspect]
     Indication: MYELODYSPLASTIC SYNDROME
     Dosage: 1500 MG DAILY
     Route: 048
     Dates: start: 20090312
  2. EXJADE [Suspect]
     Indication: ANAEMIA
  3. EXJADE [Suspect]
     Indication: IRON OVERLOAD

REACTIONS (11)
  - ABDOMINAL PAIN [None]
  - ASTHENIA [None]
  - CLOSTRIDIUM DIFFICILE COLITIS [None]
  - DEATH [None]
  - DIARRHOEA [None]
  - HAEMOGLOBIN DECREASED [None]
  - PANCREATOLITHIASIS [None]
  - PNEUMONIA [None]
  - RESPIRATORY DISTRESS [None]
  - SERUM FERRITIN INCREASED [None]
  - VOMITING [None]
